FAERS Safety Report 7736568-7 (Version None)
Quarter: 2011Q3

REPORT INFORMATION
  Report Type: 
  Country: None (occurrence: None)
  Receive Date: 20110902
  Receipt Date: 20110822
  Transmission Date: 20111222
  Serious: Yes (Hospitalization)
  Sender: FDA-Public Use
  Company Number: 2011-2737

PATIENT
  Age: 4 Year
  Sex: Male
  Weight: 17 kg

DRUGS (6)
  1. OTIC DROPS (ABX)(ANTIBIOTICS) [Concomitant]
  2. CHILDREN'S IBUPROFEN [Concomitant]
  3. INCRELEX [Suspect]
     Indication: PRIMARY INSULIN LIKE GROWTH FACTOR-1 DEFICIENCY
     Dosage: SEE IMAGE
     Route: 058
     Dates: start: 20100901, end: 20101201
  4. INCRELEX [Suspect]
     Indication: PRIMARY INSULIN LIKE GROWTH FACTOR-1 DEFICIENCY
     Dosage: SEE IMAGE
     Route: 058
     Dates: start: 20110401
  5. INCRELEX [Suspect]
     Indication: PRIMARY INSULIN LIKE GROWTH FACTOR-1 DEFICIENCY
     Dosage: SEE IMAGE
     Route: 058
     Dates: start: 20110101
  6. CHILDREN'S TYLENOL (PARACETAMOL) [Concomitant]

REACTIONS (10)
  - PHARYNGITIS STREPTOCOCCAL [None]
  - DISEASE RECURRENCE [None]
  - ADENOIDAL HYPERTROPHY [None]
  - RASH [None]
  - SINUS CONGESTION [None]
  - NASAL TURBINATE HYPERTROPHY [None]
  - FACE OEDEMA [None]
  - BREATH ODOUR [None]
  - TONSILLAR HYPERTROPHY [None]
  - OTITIS MEDIA CHRONIC [None]
